FAERS Safety Report 14052187 (Version 2)
Quarter: 2017Q4

REPORT INFORMATION
  Report Type: Report from Study
  Country: AU (occurrence: AU)
  Receive Date: 20171005
  Receipt Date: 20171023
  Transmission Date: 20180321
  Serious: Yes (Hospitalization, Other)
  Sender: FDA-Public Use
  Company Number: AU-PFIZER INC-2017362145

PATIENT
  Age: 70 Year
  Sex: Female
  Weight: 73 kg

DRUGS (11)
  1. CARBOPLATIN. [Suspect]
     Active Substance: CARBOPLATIN
     Dosage: 570 MG, UNK
     Route: 042
     Dates: end: 20160824
  2. PACLITAXEL. [Suspect]
     Active Substance: PACLITAXEL
     Indication: NON-SMALL CELL LUNG CANCER
     Dosage: 374 MG, UNK
     Route: 042
     Dates: start: 20160505
  3. AVELUMAB [Suspect]
     Active Substance: AVELUMAB
     Indication: NON-SMALL CELL LUNG CANCER
     Dosage: 685 MG, ONCE EVERY TWO WEEKS
     Route: 042
     Dates: start: 20161214
  4. CARBOPLATIN. [Suspect]
     Active Substance: CARBOPLATIN
     Dosage: 570 MG, UNK
     Route: 042
  5. AVELUMAB [Suspect]
     Active Substance: AVELUMAB
     Dosage: 685 MG, ONCE EVERY TWO WEEKS
     Route: 042
  6. CARBOPLATIN. [Suspect]
     Active Substance: CARBOPLATIN
     Dosage: 570 MG, UNK
     Route: 042
  7. PACLITAXEL. [Suspect]
     Active Substance: PACLITAXEL
     Dosage: 374 MG, UNK
     Route: 042
  8. CARBOPLATIN. [Suspect]
     Active Substance: CARBOPLATIN
     Indication: NON-SMALL CELL LUNG CANCER
     Dosage: 570 MG, UNK
     Route: 042
     Dates: start: 20160505
  9. AVELUMAB [Suspect]
     Active Substance: AVELUMAB
     Dosage: 685 MG, ONCE EVERY TWO WEEKS
     Route: 042
  10. PACLITAXEL. [Suspect]
     Active Substance: PACLITAXEL
     Dosage: 374 MG, UNK
     Route: 042
     Dates: end: 20160824
  11. AVELUMAB [Suspect]
     Active Substance: AVELUMAB
     Dosage: 685 MG, ONCE EVERY TWO WEEKS
     Route: 042

REACTIONS (2)
  - Adenocarcinoma of colon [Recovered/Resolved]
  - Second primary malignancy [Recovered/Resolved]

NARRATIVE: CASE EVENT DATE: 20170807
